FAERS Safety Report 9966145 (Version 2)
Quarter: 2014Q1

REPORT INFORMATION
  Report Type: Report from Study
  Country: US (occurrence: US)
  Receive Date: 20140305
  Receipt Date: 20140305
  Transmission Date: 20141002
  Serious: Yes (Hospitalization)
  Sender: FDA-Public Use
  Company Number: US-ABBVIE-13P-163-1101629-00

PATIENT
  Age: 31 Year
  Sex: Male
  Weight: 91.25 kg

DRUGS (3)
  1. HUMIRA [Suspect]
     Indication: CROHN^S DISEASE
     Dosage: ONE TIME DOSE
     Route: 058
     Dates: start: 20130207, end: 20130207
  2. HUMIRA [Suspect]
     Dosage: ONE TIME DOSE
     Route: 058
     Dates: start: 20130221, end: 20130221
  3. HUMIRA [Suspect]
     Route: 058
     Dates: start: 20130307

REACTIONS (1)
  - Abdominal pain [Recovered/Resolved]
